FAERS Safety Report 4720292-9 (Version None)
Quarter: 2005Q3

REPORT INFORMATION
  Report Type: 
  Country: None (occurrence: None)
  Receive Date: 20050719
  Receipt Date: 20050706
  Transmission Date: 20060218
  Serious: Yes (Hospitalization, Other)
  Sender: FDA-Public Use
  Company Number: HQWYE433107JAN05

PATIENT
  Age: 49 Year
  Sex: Male

DRUGS (1)
  1. RAPAMUNE [Suspect]
     Indication: PROPHYLAXIS AGAINST TRANSPLANT REJECTION
     Dosage: 5 MG 1X PER 1 DAY ORAL
     Route: 048
     Dates: start: 20030827

REACTIONS (9)
  - ARTERIAL OCCLUSIVE DISEASE [None]
  - DEVICE FAILURE [None]
  - HAEMATURIA [None]
  - MUSCLE ATROPHY [None]
  - NEUROPATHY [None]
  - PERIPHERAL ARTERY ANEURYSM [None]
  - POOR PERIPHERAL CIRCULATION [None]
  - SUBCLAVIAN ARTERY ANEURYSM [None]
  - VEIN DISORDER [None]
